FAERS Safety Report 5069053-4 (Version None)
Quarter: 2006Q3

REPORT INFORMATION
  Report Type: 
  Country: None (occurrence: None)
  Receive Date: 20060731
  Receipt Date: 20060717
  Transmission Date: 20061208
  Serious: Yes (Congenital Anomaly)
  Sender: FDA-Public Use
  Company Number: 2005SS000914

PATIENT
  Sex: Male

DRUGS (2)
  1. MYOBLOC [Suspect]
     Indication: DRUG EXPOSURE DURING PREGNANCY
     Dosage: TRPL
     Dates: start: 20050715, end: 20050715
  2. ANTIBIOTICS [Concomitant]

REACTIONS (7)
  - CAESAREAN SECTION [None]
  - CONGENITAL GENITAL MALFORMATION MALE [None]
  - CONGENITAL RENAL CYST [None]
  - DOUBLE URETER [None]
  - DRUG EXPOSURE DURING PREGNANCY [None]
  - RENAL DISORDER [None]
  - TESTICULAR DISORDER [None]
